FAERS Safety Report 6497090-1 (Version None)
Quarter: 2009Q4

REPORT INFORMATION
  Report Type: 
  Country: None (occurrence: None)
  Receive Date: 20091215
  Receipt Date: 20090303
  Transmission Date: 20100525
  Serious: No
  Sender: FDA-Public Use
  Company Number: A0771346A

PATIENT

DRUGS (1)
  1. AVODART [Suspect]

REACTIONS (1)
  - PROSTATIC SPECIFIC ANTIGEN INCREASED [None]
